FAERS Safety Report 20622350 (Version 3)
Quarter: 2022Q2

REPORT INFORMATION
  Report Type: Spontaneous
  Country: CN (occurrence: None)
  Receive Date: 20220322
  Receipt Date: 20220405
  Transmission Date: 20220721
  Serious: Yes (Other)
  Sender: FDA-Public Use
  Company Number: 2022A119239

PATIENT

DRUGS (2)
  1. TAGRISSO [Suspect]
     Active Substance: OSIMERTINIB
     Dosage: 80.0MG UNKNOWN
     Route: 048
  2. AFATINIB [Concomitant]
     Active Substance: AFATINIB

REACTIONS (4)
  - Disease progression [Unknown]
  - HER2 gene amplification [Unknown]
  - Drug resistance [Unknown]
  - Gene mutation [Unknown]
